FAERS Safety Report 18682488 (Version 1)
Quarter: 2020Q4

REPORT INFORMATION
  Report Type: Other
  Country: IT (occurrence: IT)
  Receive Date: 20201230
  Receipt Date: 20201230
  Transmission Date: 20210114
  Serious: Yes (Hospitalization)
  Sender: FDA-Public Use
  Company Number: IT-EMCURE PHARMACEUTICALS LTD-2020-EPL-002327

PATIENT
  Age: 85 Year
  Sex: Male

DRUGS (1)
  1. ZOLEDRONIC ACID [Suspect]
     Active Substance: ZOLEDRONIC ACID
     Indication: PLASMA CELL MYELOMA
     Dosage: 4 MILLIGRAM
     Route: 030

REACTIONS (3)
  - Osteonecrosis of jaw [Recovering/Resolving]
  - Bone fistula [Recovering/Resolving]
  - Abscess oral [Recovering/Resolving]

NARRATIVE: CASE EVENT DATE: 20200926
